FAERS Safety Report 7821892-X (Version None)
Quarter: 2011Q4

REPORT INFORMATION
  Report Type: 
  Country: None (occurrence: None)
  Receive Date: 20111018
  Receipt Date: 20110531
  Transmission Date: 20120403
  Serious: No
  Sender: FDA-Public Use
  Company Number: US-ASTRAZENECA-2011SE33696

PATIENT
  Age: 79 Year
  Sex: Female
  Weight: 90.7 kg

DRUGS (2)
  1. SYMBICORT [Suspect]
     Dosage: 160/4.5 MG TWO PUFFS TWICE DAILY
     Route: 055
  2. SPIRIVA [Concomitant]

REACTIONS (2)
  - OROPHARYNGEAL PAIN [None]
  - AGEUSIA [None]
